FAERS Safety Report 9832900 (Version 2)
Quarter: 2014Q1

REPORT INFORMATION
  Report Type: Spontaneous
  Country: US (occurrence: US)
  Receive Date: 20140121
  Receipt Date: 20140326
  Transmission Date: 20141002
  Serious: No
  Sender: FDA-Public Use
  Company Number: US-PFIZER INC-2014014545

PATIENT
  Age: 58 Year
  Sex: Female

DRUGS (13)
  1. XELJANZ [Suspect]
     Indication: RHEUMATOID ARTHRITIS
     Dosage: 5 MG, 1X/DAY
     Route: 048
     Dates: start: 201312
  2. XELJANZ [Suspect]
     Dosage: 5 MG, 1X/DAY
     Route: 048
     Dates: start: 20140116
  3. ATORVASTATIN CALCIUM [Suspect]
     Dosage: UNK
  4. ZETIA [Suspect]
     Dosage: UNK
  5. AMLODIPINE [Concomitant]
     Dosage: UNK
  6. CALCIUM [Concomitant]
     Dosage: UNK
  7. VITAMIN B [Concomitant]
     Dosage: UNK
  8. VITAMIN D [Concomitant]
     Dosage: UNK
  9. LIPITOR [Concomitant]
     Dosage: UNK
  10. PROTONIX [Concomitant]
     Dosage: UNK
  11. VICKS DAYQUIL [Concomitant]
     Dosage: UNK
  12. VICKS SINEX [Concomitant]
     Dosage: UNK
  13. MULTIVITAMINS [Concomitant]

REACTIONS (5)
  - Incorrect dose administered [Unknown]
  - Fatigue [Not Recovered/Not Resolved]
  - Pruritus generalised [Unknown]
  - Abdominal pain upper [Not Recovered/Not Resolved]
  - Blood pressure increased [Unknown]
